FAERS Safety Report 5925238-3 (Version None)
Quarter: 2008Q3

REPORT INFORMATION
  Report Type: 
  Country: None (occurrence: None)
  Receive Date: 20080909
  Receipt Date: 20070904
  Transmission Date: 20090109
  Serious: Yes (Other)
  Sender: FDA-Public Use
  Company Number: 163-20785-07090161

PATIENT
  Age: 65 Year
  Sex: Female

DRUGS (3)
  1. THALOMID [Suspect]
     Indication: MULTIPLE MYELOMA
     Dosage: 100 MG, 2 IN 1 D, ORAL : 100-200MG, DAILY, ORAL : 100-200MG, DAILY, ORAL
     Route: 048
     Dates: start: 20020117, end: 20020301
  2. THALOMID [Suspect]
     Indication: MULTIPLE MYELOMA
     Dosage: 100 MG, 2 IN 1 D, ORAL : 100-200MG, DAILY, ORAL : 100-200MG, DAILY, ORAL
     Route: 048
     Dates: start: 20031002, end: 20041001
  3. THALOMID [Suspect]
     Indication: MULTIPLE MYELOMA
     Dosage: 100 MG, 2 IN 1 D, ORAL : 100-200MG, DAILY, ORAL : 100-200MG, DAILY, ORAL
     Route: 048
     Dates: start: 20041105, end: 20060601

REACTIONS (1)
  - THROMBOSIS [None]
